FAERS Safety Report 20897906 (Version 1)
Quarter: 2022Q2

REPORT INFORMATION
  Report Type: Report from Study
  Country: AT (occurrence: AT)
  Receive Date: 20220531
  Receipt Date: 20220531
  Transmission Date: 20220721
  Serious: Yes (Death, Hospitalization, Other)
  Sender: FDA-Public Use
  Company Number: AT-BRISTOL-MYERS SQUIBB COMPANY-BMS-2020-011851

PATIENT
  Age: 79 Year
  Sex: Male
  Weight: 75 kg

DRUGS (1)
  1. IPILIMUMAB [Suspect]
     Active Substance: IPILIMUMAB
     Indication: Prostate cancer
     Route: 042
     Dates: start: 20200123, end: 20200123

REACTIONS (6)
  - Immune-mediated hepatitis [Fatal]
  - Malignant neoplasm progression [Fatal]
  - Neutropenia [Recovered/Resolved]
  - Pneumonia [Recovered/Resolved]
  - Thrombocytopenia [Recovered/Resolved]
  - Colitis [Not Recovered/Not Resolved]

NARRATIVE: CASE EVENT DATE: 20200210
